FAERS Safety Report 5086535-X (Version None)
Quarter: 2006Q3

REPORT INFORMATION
  Report Type: 
  Country: None (occurrence: None)
  Receive Date: 20060818
  Receipt Date: 20060814
  Transmission Date: 20061208
  Serious: Yes (Death, Life-Threatening)
  Sender: FDA-Public Use
  Company Number: TCI2006A02074

PATIENT
  Age: 62 Year
  Sex: Male

DRUGS (6)
  1. LANSOPRAZOLE [Suspect]
     Indication: DUODENAL ULCER PERFORATION
     Dosage: 30 MG (30 MG, 1 IN 1 D) NASOGASTRIC TUBE
     Dates: start: 20060503, end: 20060515
  2. PAZUCROSS (PAZUFLOXACIN) (INJECTION) [Suspect]
     Indication: PNEUMONIA
     Dosage: 1000 MG (500 MG, 2 IN 1 D) INTRAVENOUS
     Route: 042
     Dates: start: 20060503, end: 20060509
  3. BIOFERMIN (BIOFERMIN) (PREPARATION FOR ORAL USE (NOS) ) [Concomitant]
  4. TARGOCID [Concomitant]
  5. PRIMPERAN (METOCLOPRAMIDE) (PREPARATION FOR ORAL USE (NOS)) [Concomitant]
  6. GASMOTIN (MOSAPRIDE CITRATE) (PREPARATION FOR ORAL USE (NOS)) [Concomitant]

REACTIONS (15)
  - DUODENAL ULCER HAEMORRHAGE [None]
  - GASTROINTESTINAL HAEMORRHAGE [None]
  - HAEMOGLOBIN DECREASED [None]
  - HYPOPROTEINAEMIA [None]
  - HYPOTENSION [None]
  - NECROSIS [None]
  - OEDEMA [None]
  - OESOPHAGEAL STENOSIS [None]
  - PLEURAL EFFUSION [None]
  - PNEUMONIA [None]
  - PYREXIA [None]
  - RASH PRURITIC [None]
  - SEPSIS [None]
  - STEVENS-JOHNSON SYNDROME [None]
  - TOXIC EPIDERMAL NECROLYSIS [None]
